FAERS Safety Report 6408292-4 (Version None)
Quarter: 2009Q4

REPORT INFORMATION
  Report Type: 
  Country: None (occurrence: None)
  Receive Date: 20091021
  Receipt Date: 20091008
  Transmission Date: 20100525
  Serious: Yes (Death, Life-Threatening, Hospitalization, Disabling, Other)
  Sender: FDA-Public Use
  Company Number: NZ-PFIZER INC-2009260303

PATIENT
  Age: 49 Year

DRUGS (6)
  1. SUTENT [Suspect]
     Indication: METASTATIC RENAL CELL CARCINOMA
     Dosage: 50 MG 1X/DAY, FOUR WEEKS ON, TWO WEEKS OFF
     Route: 048
     Dates: start: 20090715, end: 20090723
  2. METOPROLOL [Concomitant]
     Indication: HYPERTENSION
     Dosage: 47.5 MG, 1X/DAY
     Route: 048
     Dates: start: 20090714
  3. LOSEC [Concomitant]
  4. CYCLIZINE [Concomitant]
  5. PARACETAMOL [Concomitant]
  6. VOLTAREN [Concomitant]
     Indication: PAIN
     Dosage: 75 MG, 2X/DAY OR AS NEEDED
     Route: 048
     Dates: start: 20090715

REACTIONS (3)
  - CONFUSIONAL STATE [None]
  - HAEMORRHAGE INTRACRANIAL [None]
  - HEMIPARESIS [None]
